FAERS Safety Report 21142558 (Version 1)
Quarter: 2022Q3

REPORT INFORMATION
  Report Type: Spontaneous
  Country: US (occurrence: US)
  Receive Date: 20220728
  Receipt Date: 20220728
  Transmission Date: 20221026
  Serious: No
  Sender: FDA-Public Use
  Company Number: US-009507513-2207USA000625

PATIENT
  Age: 26 Year
  Sex: Male

DRUGS (2)
  1. INVANZ [Suspect]
     Active Substance: ERTAPENEM SODIUM
     Indication: Osteomyelitis bacterial
     Dosage: 1 G/D
     Route: 042
  2. CEFTRIAXONE [Concomitant]
     Active Substance: CEFTRIAXONE
     Indication: Osteomyelitis chronic
     Dosage: 1 G, EVERY 24 HOURS
     Route: 042

REACTIONS (1)
  - Product use in unapproved indication [Unknown]
